FAERS Safety Report 4788522-5 (Version None)
Quarter: 2005Q4

REPORT INFORMATION
  Report Type: 
  Country: None (occurrence: None)
  Receive Date: 20051005
  Receipt Date: 20050926
  Transmission Date: 20060501
  Serious: Yes (Death)
  Sender: FDA-Public Use
  Company Number: US-JNJFOC-20050806485

PATIENT
  Sex: Female
  Weight: 84.3 kg

DRUGS (1)
  1. ORTHO EVRA [Suspect]
     Indication: CONTRACEPTION
     Route: 062
     Dates: start: 20050701, end: 20050811

REACTIONS (6)
  - ACUTE PSYCHOSIS [None]
  - CARDIO-RESPIRATORY ARREST [None]
  - DEPRESSION [None]
  - ENCEPHALITIS VIRAL [None]
  - LOSS OF CONSCIOUSNESS [None]
  - PERSONALITY CHANGE [None]
